FAERS Safety Report 6219786-9 (Version None)
Quarter: 2009Q2

REPORT INFORMATION
  Report Type: 
  Country: None (occurrence: None)
  Receive Date: 20090609
  Receipt Date: 20090602
  Transmission Date: 20091009
  Serious: Yes (Other)
  Sender: FDA-Public Use
  Company Number: B0575589A

PATIENT
  Sex: Female

DRUGS (3)
  1. VOXRA [Suspect]
     Indication: DEPRESSION
     Dosage: 150MG IN THE MORNING
     Route: 065
  2. ATARAX [Concomitant]
  3. UNKNOWN DRUG [Concomitant]

REACTIONS (6)
  - ANXIETY [None]
  - ELEVATED MOOD [None]
  - FEELING ABNORMAL [None]
  - ILL-DEFINED DISORDER [None]
  - MANIA [None]
  - MOOD SWINGS [None]
